FAERS Safety Report 9753688 (Version 2)
Quarter: 2015Q3

REPORT INFORMATION
  Report Type: Spontaneous
  Country: US (occurrence: US)
  Receive Date: 20131213
  Receipt Date: 20150805
  Transmission Date: 20151125
  Serious: Yes (Hospitalization)
  Sender: FDA-Public Use
  Company Number: US-GILEAD-2009-0026028

PATIENT
  Age: 45 Year
  Sex: Male
  Weight: 81.65 kg

DRUGS (8)
  1. DIGOXIN. [Concomitant]
     Active Substance: DIGOXIN
  2. LETAIRIS [Suspect]
     Active Substance: AMBRISENTAN
     Indication: PULMONARY ARTERIAL HYPERTENSION
     Route: 048
     Dates: start: 20080619, end: 20091214
  3. FUROSEMIDE. [Concomitant]
     Active Substance: FUROSEMIDE
  4. MAGNESIUM OXIDE. [Concomitant]
     Active Substance: MAGNESIUM OXIDE
  5. ZOCOR [Concomitant]
     Active Substance: SIMVASTATIN
  6. OXYGEN. [Concomitant]
     Active Substance: OXYGEN
  7. WARFARIN [Concomitant]
     Active Substance: WARFARIN
  8. LISINOPRIL. [Concomitant]
     Active Substance: LISINOPRIL

REACTIONS (1)
  - Fluid retention [Unknown]
